FAERS Safety Report 4357546-4 (Version None)
Quarter: 2004Q2

REPORT INFORMATION
  Report Type: 
  Country: None (occurrence: None)
  Receive Date: 20040510
  Receipt Date: 20040428
  Transmission Date: 20050107
  Serious: Yes (Life-Threatening, Hospitalization)
  Sender: FDA-Public Use
  Company Number: GB-JNJFOC-20040406107

PATIENT
  Age: 39 Year
  Sex: Female

DRUGS (5)
  1. REMICADE [Suspect]
     Indication: RHEUMATOID ARTHRITIS
     Dosage: 200MG - 300MG - 250MG
     Dates: start: 20030519
  2. METHOTREXATE [Concomitant]
  3. DIHYDROCODEINE (DIHYDROCODEINE) [Concomitant]
  4. CELECOXIB (CELECOXIB) [Concomitant]
  5. AMITRIPTYLINE HCL [Concomitant]

REACTIONS (3)
  - DEPRESSION [None]
  - OVERDOSE [None]
  - SUICIDE ATTEMPT [None]
